FAERS Safety Report 11816221 (Version 2)
Quarter: 2015Q4

REPORT INFORMATION
  Report Type: Spontaneous
  Country: DE (occurrence: GR)
  Receive Date: 20151209
  Receipt Date: 20151218
  Transmission Date: 20160305
  Serious: Yes (Death, Hospitalization)
  Sender: FDA-Public Use
  Company Number: DE-ACTELION-A-NJ2015-128446

PATIENT
  Age: 75 Year
  Sex: Male

DRUGS (1)
  1. VENTAVIS [Suspect]
     Active Substance: ILOPROST
     Indication: PULMONARY HYPERTENSION
     Dosage: DAILY DOSE 15 MCG
     Route: 055
     Dates: start: 2015

REACTIONS (1)
  - Death [Fatal]

NARRATIVE: CASE EVENT DATE: 2015
